FAERS Safety Report 25199558 (Version 1)
Quarter: 2025Q2

REPORT INFORMATION
  Report Type: Report from Study
  Country: US (occurrence: US)
  Receive Date: 20250415
  Receipt Date: 20250415
  Transmission Date: 20250716
  Serious: Yes (Other)
  Sender: ABBVIE
  Company Number: US-ABBVIE-6223526

PATIENT
  Age: 67 Year
  Sex: Female

DRUGS (2)
  1. SKYRIZI [Suspect]
     Active Substance: RISANKIZUMAB-RZAA
     Indication: Psoriatic arthropathy
     Route: 058
     Dates: start: 20230915
  2. METFORMIN [Suspect]
     Active Substance: METFORMIN HYDROCHLORIDE
     Indication: Diabetes mellitus
     Route: 065

REACTIONS (6)
  - Cataract operation [Not Recovered/Not Resolved]
  - Diabetes mellitus [Recovered/Resolved]
  - Gastrooesophageal reflux disease [Recovered/Resolved]
  - Weight decreased [Recovered/Resolved]
  - Hypermetropia [Unknown]
  - Nausea [Unknown]

NARRATIVE: CASE EVENT DATE: 20240404
